FAERS Safety Report 16237440 (Version 2)
Quarter: 2019Q2

REPORT INFORMATION
  Report Type: Report from Study
  Country: US (occurrence: US)
  Receive Date: 20190425
  Receipt Date: 20190508
  Transmission Date: 20190711
  Serious: Yes (Hospitalization)
  Sender: FDA-Public Use
  Company Number: US-BIOGEN-2019BI00728162

PATIENT
  Age: 19 Year
  Sex: Male

DRUGS (3)
  1. SPINRAZA [Suspect]
     Active Substance: NUSINERSEN
     Route: 065
  2. VYVANSE [Concomitant]
     Active Substance: LISDEXAMFETAMINE DIMESYLATE
     Indication: PRODUCT USED FOR UNKNOWN INDICATION
     Route: 048
  3. SPINRAZA [Suspect]
     Active Substance: NUSINERSEN
     Indication: SPINAL MUSCULAR ATROPHY
     Dosage: FIRST 3 LOADING DOSES EVERY 14 DAYS; 4TH LOADING DOSE AFTER 30 DAYS. MAINT DOSES: ONE EVERY 4 MONS
     Route: 037
     Dates: start: 20190404, end: 20190408

REACTIONS (7)
  - Neck pain [Recovered/Resolved]
  - Nausea [Recovered/Resolved]
  - Musculoskeletal pain [Recovered/Resolved]
  - Cerebrospinal fluid leakage [Recovered/Resolved]
  - Back pain [Recovered/Resolved]
  - Vomiting [Recovered/Resolved]
  - Headache [Recovered/Resolved]

NARRATIVE: CASE EVENT DATE: 20190404
